FAERS Safety Report 6198533-3 (Version None)
Quarter: 2009Q2

REPORT INFORMATION
  Report Type: 
  Country: None (occurrence: None)
  Receive Date: 20090521
  Receipt Date: 20090518
  Transmission Date: 20091009
  Serious: Yes (Death, Other)
  Sender: FDA-Public Use
  Company Number: PHHY2009BR19177

PATIENT
  Age: 91 Year
  Sex: Female

DRUGS (3)
  1. DIOVAN [Suspect]
     Indication: HYPERTENSION
     Dosage: 2 DF A DAY, IN THE MORNING AND AT NIGHT
     Route: 048
  2. DILACORON [Concomitant]
     Dosage: 1 DF (80 MG), QD (IN THE MORNING)
     Route: 048
  3. SOMALGIN [Concomitant]
     Dosage: 1 DF (325 MG) AFTER THE LUNCH
     Route: 048

REACTIONS (6)
  - CARDIAC ARREST [None]
  - CEREBROVASCULAR ACCIDENT [None]
  - EPILEPSY [None]
  - HEMIPLEGIA [None]
  - HYPERTENSION [None]
  - URINARY TRACT INFECTION [None]
